FAERS Safety Report 4881293-3 (Version None)
Quarter: 2005Q4

REPORT INFORMATION
  Report Type: 
  Country: None (occurrence: None)
  Receive Date: 20051212
  Receipt Date: 20050809
  Transmission Date: 20060501
  Serious: Yes (Hospitalization)
  Sender: FDA-Public Use
  Company Number: 05P-163-0308021-00

PATIENT
  Sex: Female

DRUGS (1)
  1. TARKA [Suspect]
     Dosage: PER ORAL
     Route: 048

REACTIONS (1)
  - ATRIOVENTRICULAR BLOCK [None]
